FAERS Safety Report 23848715 (Version 1)
Quarter: 2024Q2

REPORT INFORMATION
  Report Type: Spontaneous
  Country: US (occurrence: None)
  Receive Date: 20240510
  Receipt Date: 20240510
  Transmission Date: 20240716
  Serious: Yes (Hospitalization)
  Sender: FDA-Public Use
  Company Number: None

PATIENT
  Age: 64 Year
  Sex: Female
  Weight: 62.9 kg

DRUGS (1)
  1. SACITUZUMAB [Suspect]
     Active Substance: SACITUZUMAB
     Indication: Triple negative breast cancer

REACTIONS (5)
  - Disease progression [None]
  - Malaise [None]
  - Dizziness [None]
  - Asthenia [None]
  - Pulmonary embolism [None]

NARRATIVE: CASE EVENT DATE: 20240423
